FAERS Safety Report 8537749-5 (Version None)
Quarter: 2012Q3

REPORT INFORMATION
  Report Type: 
  Country: None (occurrence: None)
  Receive Date: 20120725
  Receipt Date: 20120718
  Transmission Date: 20120928
  Serious: Yes (Hospitalization)
  Sender: FDA-Public Use
  Company Number: US-009507513-1207USA008088

PATIENT

DRUGS (4)
  1. RIBASPHERE [Suspect]
     Route: 048
  2. PEGASYS [Suspect]
     Route: 058
  3. NEUPOGEN [Concomitant]
  4. VICTRELIS [Suspect]
     Dosage: UNK
     Route: 048
     Dates: start: 20120702

REACTIONS (2)
  - WHITE BLOOD CELL COUNT DECREASED [None]
  - UNEVALUABLE EVENT [None]
